FAERS Safety Report 19073487 (Version 1)
Quarter: 2021Q1

REPORT INFORMATION
  Report Type: Spontaneous
  Country: US (occurrence: US)
  Receive Date: 20210330
  Receipt Date: 20210330
  Transmission Date: 20210420
  Serious: Yes (Death)
  Sender: FDA-Public Use
  Company Number: None

PATIENT
  Age: 75 Year
  Sex: Female

DRUGS (3)
  1. CYCLOSPORINE. [Suspect]
     Active Substance: CYCLOSPORINE
     Indication: HEART AND LUNG TRANSPLANT
     Dosage: ?          OTHER FREQUENCY:50MG QAM, 75MG QPM;?
     Route: 048
     Dates: start: 19950725, end: 20210330
  2. PREDNISONE 2.5 MG [Concomitant]
     Active Substance: PREDNISONE
     Dates: start: 19950725, end: 20210330
  3. AZATHIOPRINE 50 MG [Concomitant]
     Active Substance: AZATHIOPRINE
     Dates: start: 19950725, end: 20210330

REACTIONS (1)
  - Death [None]

NARRATIVE: CASE EVENT DATE: 20210330
